FAERS Safety Report 5370378-3 (Version None)
Quarter: 2007Q2

REPORT INFORMATION
  Report Type: 
  Country: None (occurrence: None)
  Receive Date: 20070626
  Receipt Date: 20061204
  Transmission Date: 20071010
  Serious: No
  Sender: FDA-Public Use
  Company Number: US-AMGEN-US200237

PATIENT
  Sex: Female
  Weight: 51.3 kg

DRUGS (22)
  1. ARANESP [Suspect]
     Indication: ANAEMIA OF MALIGNANT DISEASE
     Route: 065
     Dates: start: 20041123, end: 20061108
  2. RITUXAN [Concomitant]
     Route: 065
     Dates: start: 20041201, end: 20060920
  3. PRILOSEC [Concomitant]
     Route: 065
  4. LOPID [Concomitant]
     Route: 065
  5. METHOCARBAMOL [Concomitant]
     Route: 065
  6. FIORICET [Concomitant]
     Route: 065
  7. TYLENOL [Concomitant]
     Route: 065
  8. CLARITIN [Concomitant]
     Route: 065
  9. FOLIC ACID [Concomitant]
     Route: 065
  10. SYNTHROID [Concomitant]
     Route: 065
  11. DIOVAN [Concomitant]
     Route: 065
  12. VITAMIN CAP [Concomitant]
     Route: 065
  13. CELEBREX [Concomitant]
     Route: 065
  14. OXYCODONE HCL [Concomitant]
     Route: 065
  15. VITAMIN D [Concomitant]
     Route: 065
  16. LACTULOSE [Concomitant]
     Route: 065
  17. CARDURA [Concomitant]
     Route: 065
  18. CYMBALTA [Concomitant]
     Route: 065
  19. ZOFRAN [Concomitant]
     Route: 065
  20. REGLAN [Concomitant]
     Route: 065
  21. CARAFATE [Concomitant]
     Route: 065
  22. MECLIZINE [Concomitant]
     Route: 065

REACTIONS (1)
  - HAEMOGLOBIN DECREASED [None]
